FAERS Safety Report 7929542-9 (Version None)
Quarter: 2011Q4

REPORT INFORMATION
  Report Type: 
  Country: None (occurrence: None)
  Receive Date: 20111121
  Receipt Date: 20111110
  Transmission Date: 20120403
  Serious: Yes (Other)
  Sender: FDA-Public Use
  Company Number: CA-JNJFOC-20111008878

PATIENT
  Sex: Female
  Weight: 72 kg

DRUGS (6)
  1. MERCAPTOPURINE [Concomitant]
     Route: 065
  2. REMICADE [Suspect]
     Indication: RHEUMATOID ARTHRITIS
     Route: 042
     Dates: start: 20050429
  3. FOLIC ACID [Concomitant]
     Route: 065
  4. ZOLEDRONOC ACID [Concomitant]
     Route: 065
  5. AMITRIPTYLINE HCL [Concomitant]
     Route: 065
  6. REMICADE [Suspect]
     Route: 042
     Dates: start: 20110914

REACTIONS (1)
  - ARTHROSCOPIC SURGERY [None]
